FAERS Safety Report 11228055 (Version 2)
Quarter: 2015Q4

REPORT INFORMATION
  Report Type: Spontaneous
  Country: JP (occurrence: JP)
  Receive Date: 20150630
  Receipt Date: 20151218
  Transmission Date: 20160304
  Serious: Yes (Hospitalization, Other)
  Sender: FDA-Public Use
  Company Number: JP-JNJFOC-20150620491

PATIENT
  Age: 26 Year
  Sex: Male

DRUGS (3)
  1. REMICADE [Suspect]
     Active Substance: INFLIXIMAB
     Indication: CROHN^S DISEASE
     Dosage: THE PATIENT HAD RECEIVED 100 INFUSIONS AT THE TIME OF REPORT.
     Route: 042
     Dates: start: 20150618, end: 20150618
  2. PENTASA [Concomitant]
     Active Substance: MESALAMINE
     Route: 065
  3. REMICADE [Suspect]
     Active Substance: INFLIXIMAB
     Indication: CROHN^S DISEASE
     Route: 042

REACTIONS (2)
  - Crohn^s disease [Unknown]
  - Hypokalaemia [Recovered/Resolved]

NARRATIVE: CASE EVENT DATE: 20150619
